FAERS Safety Report 17819827 (Version 1)
Quarter: 2020Q2

REPORT INFORMATION
  Report Type: Spontaneous
  Country: MX (occurrence: MX)
  Receive Date: 20200524
  Receipt Date: 20200524
  Transmission Date: 20200714
  Serious: Yes (Other)
  Sender: FDA-Public Use
  Company Number: MX-NOVOPROD-729047

PATIENT
  Age: 45 Year
  Sex: Female
  Weight: 76.5 kg

DRUGS (1)
  1. SAXENDA [Suspect]
     Active Substance: LIRAGLUTIDE
     Indication: WEIGHT CONTROL
     Dosage: 3 MG
     Route: 058
     Dates: start: 20200404, end: 20200514

REACTIONS (9)
  - Gastritis [Not Recovered/Not Resolved]
  - Drug ineffective [Unknown]
  - Tachycardia [Recovered/Resolved]
  - Peripheral swelling [Not Recovered/Not Resolved]
  - Appetite disorder [Not Recovered/Not Resolved]
  - Food craving [Unknown]
  - Swelling of eyelid [Not Recovered/Not Resolved]
  - Anxiety [Not Recovered/Not Resolved]
  - Constipation [Not Recovered/Not Resolved]

NARRATIVE: CASE EVENT DATE: 20200404
